FAERS Safety Report 20810167 (Version 2)
Quarter: 2022Q2

REPORT INFORMATION
  Report Type: Spontaneous
  Country: US (occurrence: US)
  Receive Date: 20220510
  Receipt Date: 20220629
  Transmission Date: 20220721
  Serious: No
  Sender: FDA-Public Use
  Company Number: US-KARYOPHARM-2022KPT000506

PATIENT

DRUGS (12)
  1. XPOVIO [Suspect]
     Active Substance: SELINEXOR
     Indication: Plasma cell myeloma
     Dosage: 60 MG, WEEKLY
     Route: 048
     Dates: start: 20220421
  2. ALLOPURINOL [Concomitant]
     Active Substance: ALLOPURINOL
  3. ARGATROBAN [Concomitant]
     Active Substance: ARGATROBAN
  4. DECADRON [Concomitant]
     Active Substance: DEXAMETHASONE
  5. KYPROLIS [Concomitant]
     Active Substance: CARFILZOMIB
  6. LACTULOSE [Concomitant]
     Active Substance: LACTULOSE
  7. OLANZAPINE [Concomitant]
     Active Substance: OLANZAPINE
  8. ONDANSETRON [Concomitant]
     Active Substance: ONDANSETRON
  9. OXYCODONE [Concomitant]
     Active Substance: OXYCODONE
  10. TAMSULOSIN [Concomitant]
     Active Substance: TAMSULOSIN
  11. VALACYCLOVIR HYDROCHLORIDE [Concomitant]
     Active Substance: VALACYCLOVIR HYDROCHLORIDE
  12. ZOMETA [Concomitant]
     Active Substance: ZOLEDRONIC ACID

REACTIONS (3)
  - Abdominal discomfort [Unknown]
  - Nausea [Unknown]
  - Fatigue [Unknown]

NARRATIVE: CASE EVENT DATE: 20220101
